FAERS Safety Report 17402869 (Version 1)
Quarter: 2020Q1

REPORT INFORMATION
  Report Type: Spontaneous
  Country: US (occurrence: US)
  Receive Date: 20200211
  Receipt Date: 20200211
  Transmission Date: 20200409
  Serious: Yes (Death)
  Sender: FDA-Public Use
  Company Number: US-PFIZER INC-2020059156

PATIENT

DRUGS (1)
  1. DAURISMO [Suspect]
     Active Substance: GLASDEGIB
     Indication: ACUTE MYELOID LEUKAEMIA
     Dosage: 100 MG, UNK

REACTIONS (1)
  - Neoplasm progression [Fatal]
